FAERS Safety Report 9005628 (Version 1)
Quarter: 2013Q1

REPORT INFORMATION
  Report Type: Spontaneous
  Country: US (occurrence: US)
  Receive Date: 20130109
  Receipt Date: 20130109
  Transmission Date: 20140127
  Serious: Yes (Death)
  Sender: FDA-Public Use
  Company Number: US-PFIZER INC-2013005753

PATIENT
  Age: 20 Year
  Sex: Male

DRUGS (2)
  1. ZIPRASIDONE HCL [Suspect]
  2. UNSPECIFIED INGREDIENT [Suspect]
     Dosage: UNK

REACTIONS (2)
  - Intentional drug misuse [Fatal]
  - Toxicity to various agents [None]
